FAERS Safety Report 19447650 (Version 1)
Quarter: 2021Q2

REPORT INFORMATION
  Report Type: Spontaneous
  Country: US (occurrence: US)
  Receive Date: 20210622
  Receipt Date: 20210622
  Transmission Date: 20210717
  Serious: No
  Sender: FDA-Public Use
  Company Number: US-THERAPEUTICSMD-2021TMD01610

PATIENT
  Sex: Female
  Weight: 68.93 kg

DRUGS (3)
  1. IMVEXXY [Suspect]
     Active Substance: ESTRADIOL
     Dosage: 4 ?G ^SAYS TO USE IT MORE FREQUENTLY THAN ACTUALLY USED IT^
     Route: 067
     Dates: start: 2021, end: 2021
  2. IMVEXXY [Suspect]
     Active Substance: ESTRADIOL
     Indication: ATROPHIC VULVOVAGINITIS
     Dosage: 4 ?G ^SAYS TO USE IT MORE FREQUENTLY THAN ACTUALLY USED IT^
     Route: 067
     Dates: start: 202103, end: 2021
  3. UNSPECIFIED MEDICATIONS [Concomitant]
     Active Substance: UNSPECIFIED INGREDIENT

REACTIONS (3)
  - Vulvovaginal burning sensation [Recovered/Resolved]
  - Product use complaint [Recovered/Resolved]
  - Pruritus [Recovered/Resolved]

NARRATIVE: CASE EVENT DATE: 2021
